FAERS Safety Report 10619108 (Version 2)
Quarter: 2014Q4

REPORT INFORMATION
  Report Type: Spontaneous
  Country: PT (occurrence: PT)
  Receive Date: 20141202
  Receipt Date: 20141202
  Transmission Date: 20150529
  Serious: Yes (Death)
  Sender: FDA-Public Use
  Company Number: PT-JNJFOC-20141016703

PATIENT
  Age: 70 Year
  Sex: Female

DRUGS (5)
  1. APROVEL [Concomitant]
     Active Substance: IRBESARTAN
     Route: 065
  2. CAELYX [Suspect]
     Active Substance: DOXORUBICIN HYDROCHLORIDE
     Indication: OVARIAN CANCER RECURRENT
     Route: 065
     Dates: start: 20140430
  3. ZARATOR [Concomitant]
     Active Substance: ATORVASTATIN CALCIUM
     Route: 065
  4. PREDNISOLONE. [Concomitant]
     Active Substance: PREDNISOLONE
     Indication: PREMEDICATION
     Route: 065
  5. TRABECTEDIN [Suspect]
     Active Substance: TRABECTEDIN
     Indication: OVARIAN CANCER RECURRENT
     Dosage: TOTAL DOSE 1.9MG
     Route: 042
     Dates: start: 20140430

REACTIONS (6)
  - Pancytopenia [Fatal]
  - Haematuria [Recovered/Resolved]
  - Sepsis [Fatal]
  - Renal impairment [Fatal]
  - Off label use [Unknown]
  - Hypercalcaemia [Fatal]

NARRATIVE: CASE EVENT DATE: 20140630
